FAERS Safety Report 12772243 (Version 1)
Quarter: 2016Q3

REPORT INFORMATION
  Report Type: Spontaneous
  Country: ES (occurrence: ES)
  Receive Date: 20160922
  Receipt Date: 20160922
  Transmission Date: 20161109
  Serious: Yes (Other)
  Sender: FDA-Public Use
  Company Number: ES-FRESENIUS KABI-FK201606730

PATIENT
  Age: 16 Year
  Sex: Female

DRUGS (18)
  1. DOXORUBICIN LIPOSOMAL [Suspect]
     Active Substance: DOXORUBICIN
     Indication: ADRENOCORTICAL CARCINOMA
     Dates: start: 201203
  2. IFOSFAMIDE. [Concomitant]
     Active Substance: IFOSFAMIDE
     Indication: METASTASES TO LUNG
  3. IFOSFAMIDE. [Concomitant]
     Active Substance: IFOSFAMIDE
     Indication: METASTASES TO LIVER
  4. MESNA. [Concomitant]
     Active Substance: MESNA
     Indication: METASTASES TO LUNG
  5. DOXORUBICIN LIPOSOMAL [Suspect]
     Active Substance: DOXORUBICIN
     Indication: METASTASES TO LUNG
  6. IFOSFAMIDE. [Concomitant]
     Active Substance: IFOSFAMIDE
     Indication: ADRENOCORTICAL CARCINOMA
     Dates: start: 201012
  7. MESNA. [Concomitant]
     Active Substance: MESNA
     Indication: METASTASES TO LIVER
  8. ETOPOSIDE. [Concomitant]
     Active Substance: ETOPOSIDE
     Indication: ADRENOCORTICAL CARCINOMA
     Dates: start: 201012
  9. CISPLATIN (MANUFACTURER UNKNOWN) [Suspect]
     Active Substance: CISPLATIN
     Indication: METASTASES TO LUNG
     Route: 065
     Dates: start: 201203
  10. CISPLATIN (MANUFACTURER UNKNOWN) [Suspect]
     Active Substance: CISPLATIN
     Indication: METASTASES TO LIVER
  11. SORAFENIB [Concomitant]
     Active Substance: SORAFENIB
     Indication: METASTASES TO LIVER
  12. DOXORUBICIN LIPOSOMAL [Suspect]
     Active Substance: DOXORUBICIN
     Indication: METASTASES TO LIVER
  13. SORAFENIB [Concomitant]
     Active Substance: SORAFENIB
     Indication: ADRENOCORTICAL CARCINOMA
     Dates: end: 201010
  14. SORAFENIB [Concomitant]
     Active Substance: SORAFENIB
     Indication: METASTASES TO LUNG
  15. MESNA. [Concomitant]
     Active Substance: MESNA
     Indication: ADRENOCORTICAL CARCINOMA
     Dates: start: 201012
  16. ETOPOSIDE. [Concomitant]
     Active Substance: ETOPOSIDE
     Indication: METASTASES TO LIVER
  17. CISPLATIN (MANUFACTURER UNKNOWN) [Suspect]
     Active Substance: CISPLATIN
     Indication: ADRENOCORTICAL CARCINOMA
     Route: 065
     Dates: end: 201008
  18. ETOPOSIDE. [Concomitant]
     Active Substance: ETOPOSIDE
     Indication: METASTASES TO LUNG

REACTIONS (3)
  - Gastroenteritis [Unknown]
  - Mucosal inflammation [Unknown]
  - Pyrexia [Unknown]
